FAERS Safety Report 25050944 (Version 1)
Quarter: 2025Q1

REPORT INFORMATION
  Report Type: Spontaneous
  Country: JP (occurrence: JP)
  Receive Date: 20250307
  Receipt Date: 20250307
  Transmission Date: 20250409
  Serious: Yes (Death, Hospitalization)
  Sender: PFIZER
  Company Number: JP-PFIZER INC-PV202500025751

PATIENT
  Age: 88 Year
  Sex: Female

DRUGS (1)
  1. METHOTREXATE SODIUM [Suspect]
     Active Substance: METHOTREXATE SODIUM
     Route: 048

REACTIONS (1)
  - Lymphoproliferative disorder [Fatal]
